FAERS Safety Report 24408257 (Version 1)
Quarter: 2024Q4

REPORT INFORMATION
  Report Type: Spontaneous
  Country: US (occurrence: US)
  Receive Date: 20241007
  Receipt Date: 20241007
  Transmission Date: 20250115
  Serious: No
  Sender: Harrow Health
  Company Number: US-IMP-2024000711

PATIENT
  Age: 49 Year
  Sex: Male

DRUGS (1)
  1. VEVYE [Suspect]
     Active Substance: CYCLOSPORINE
     Indication: Product used for unknown indication
     Route: 047
     Dates: start: 20240903, end: 20240904

REACTIONS (10)
  - Eye irritation [Unknown]
  - Lacrimation increased [Unknown]
  - Dizziness [Unknown]
  - Insomnia [Unknown]
  - Dyspnoea [Unknown]
  - Balance disorder [Unknown]
  - Discomfort [Unknown]
  - Ear disorder [Unknown]
  - Product quality issue [Unknown]
  - Product contamination chemical [Unknown]

NARRATIVE: CASE EVENT DATE: 20240903
